FAERS Safety Report 8278164 (Version 4)
Quarter: 2014Q1

REPORT INFORMATION
  Report Type: Report from Study
  Country: DE (occurrence: DE)
  Receive Date: 20111207
  Receipt Date: 20140224
  Transmission Date: 20141002
  Serious: Yes (Hospitalization, Other)
  Sender: FDA-Public Use
  Company Number: PHHY2011DE92236

PATIENT
  Age: 77 Year
  Sex: Female
  Weight: 66 kg

DRUGS (10)
  1. AMN107 [Suspect]
     Indication: CHRONIC MYELOID LEUKAEMIA
     Dosage: 400 MG PER DAY
     Route: 048
     Dates: start: 20110908
  2. METFORMIN [Suspect]
     Dosage: 1700 MG PER DAY
     Route: 048
     Dates: end: 20111014
  3. CARVEDILOL [Concomitant]
     Indication: HYPERTENSION
     Dosage: 12.5 MG PER DAY
     Route: 048
  4. TORASEMIDE [Concomitant]
     Indication: HYPERTENSION
     Dosage: 10 MG PER DAY
     Route: 048
  5. ZOPICLON [Concomitant]
     Indication: SLEEP DISORDER
     Dosage: 7.5 MG PER DAY
     Route: 048
  6. ALLOPURINOL [Concomitant]
     Indication: HYPERURICAEMIA
     Dosage: 100 MG PER DAY
  7. RAMIPRIL [Concomitant]
     Dosage: 2.5 MG, UNK
  8. TOREM [Concomitant]
     Dosage: 10 MG, UNK
  9. DETRUSITOL [Concomitant]
     Dosage: 2 MG, UNK
  10. ASPIRIN PROTECT [Concomitant]
     Dosage: 100 MG, UNK

REACTIONS (6)
  - Insulin-requiring type 2 diabetes mellitus [Recovered/Resolved]
  - Hyperglycaemia [Recovered/Resolved]
  - Blood glucose increased [Recovered/Resolved]
  - Glycosylated haemoglobin increased [Recovered/Resolved]
  - Loss of consciousness [Recovered/Resolved]
  - Urinary incontinence [Not Recovered/Not Resolved]
